FAERS Safety Report 17696973 (Version 1)
Quarter: 2020Q2

REPORT INFORMATION
  Report Type: Spontaneous
  Country: US (occurrence: US)
  Receive Date: 20200423
  Receipt Date: 20200423
  Transmission Date: 20200714
  Serious: No
  Sender: FDA-Public Use
  Company Number: US-ASTRAZENECA-2020SE31464

PATIENT
  Age: 28422 Day
  Sex: Male
  Weight: 103.4 kg

DRUGS (11)
  1. BABY ASPIRIN [Concomitant]
     Active Substance: ASPIRIN
     Dosage: SINCE 14 YEARS
     Route: 048
  2. BENZONATATE. [Concomitant]
     Active Substance: BENZONATATE
     Indication: COUGH
     Route: 048
     Dates: start: 20200224
  3. METOPROLOL. [Concomitant]
     Active Substance: METOPROLOL
     Indication: BLOOD PRESSURE MEASUREMENT
     Dosage: SINCE 14 YEARS
     Route: 048
  4. PULMICORT FLEXHALER [Suspect]
     Active Substance: BUDESONIDE
     Indication: DYSPNOEA
     Route: 055
     Dates: start: 20200225
  5. LISINOPRIL. [Concomitant]
     Active Substance: LISINOPRIL
     Indication: HYPERTENSION
     Dosage: SINCE 8 MONTHS
     Route: 048
  6. PULMICORT FLEXHALER [Suspect]
     Active Substance: BUDESONIDE
     Indication: COUGH
     Dosage: ADDITIONAL PUFF OF THE MEDICATION THIS EVENING
     Route: 055
     Dates: start: 20200226
  7. PULMICORT FLEXHALER [Suspect]
     Active Substance: BUDESONIDE
     Indication: COUGH
     Route: 055
     Dates: start: 20200225
  8. PULMICORT FLEXHALER [Suspect]
     Active Substance: BUDESONIDE
     Indication: DYSPNOEA
     Dosage: ADDITIONAL PUFF OF THE MEDICATION THIS EVENING
     Route: 055
     Dates: start: 20200226
  9. PULMICORT FLEXHALER [Suspect]
     Active Substance: BUDESONIDE
     Indication: WHEEZING
     Dosage: ADDITIONAL PUFF OF THE MEDICATION THIS EVENING
     Route: 055
     Dates: start: 20200226
  10. PULMICORT FLEXHALER [Suspect]
     Active Substance: BUDESONIDE
     Indication: WHEEZING
     Route: 055
     Dates: start: 20200225
  11. SIMVIASTIN [Concomitant]
     Indication: BLOOD CHOLESTEROL INCREASED
     Dosage: SINCE 14 YEARS
     Route: 048

REACTIONS (4)
  - Diffuse idiopathic skeletal hyperostosis [Unknown]
  - Overdose [Unknown]
  - Asthma [Unknown]
  - Device issue [Unknown]

NARRATIVE: CASE EVENT DATE: 20200226
